FAERS Safety Report 26185497 (Version 1)
Quarter: 2025Q4

REPORT INFORMATION
  Report Type: Spontaneous
  Country: US (occurrence: US)
  Receive Date: 20251222
  Receipt Date: 20251222
  Transmission Date: 20260117
  Serious: No
  Sender: CSL BEHRING
  Company Number: US-BEH-2025227558

PATIENT
  Sex: Male

DRUGS (2)
  1. HIZENTRA [Suspect]
     Active Substance: HUMAN IMMUNOGLOBULIN G
     Indication: Immunodeficiency
     Dosage: UNK
     Route: 065
     Dates: start: 2023
  2. HIZENTRA [Suspect]
     Active Substance: HUMAN IMMUNOGLOBULIN G
     Indication: Multiple sclerosis
     Dosage: UNK
     Route: 065
     Dates: start: 20251125

REACTIONS (6)
  - Panic attack [Unknown]
  - Visual impairment [Unknown]
  - Affect lability [Unknown]
  - Treatment noncompliance [Unknown]
  - Inadvertent injection air bubble [Unknown]
  - Product leakage [Unknown]
